FAERS Safety Report 7372951-X (Version None)
Quarter: 2011Q1

REPORT INFORMATION
  Report Type: 
  Country: None (occurrence: None)
  Receive Date: 20110311
  Receipt Date: 20110224
  Transmission Date: 20110831
  Serious: Yes (Other)
  Sender: FDA-Public Use
  Company Number: 2011SP008858

PATIENT
  Sex: Female

DRUGS (24)
  1. ADVAIR DISKUS 100/50 [Concomitant]
  2. HYDROXYCHLOROQUINE SULFATE [Concomitant]
  3. VICODIN [Concomitant]
  4. FISH OIL [Concomitant]
  5. CINNAMON [Concomitant]
  6. VERAPAMIL [Concomitant]
  7. FOLIC ACID [Concomitant]
  8. REMICADE [Concomitant]
  9. LYRICA [Concomitant]
  10. VITAMIN B [Concomitant]
  11. NASONEX [Suspect]
     Indication: PRODUCT USED FOR UNKNOWN INDICATION
     Dosage: PRN
  12. METFORMIN [Concomitant]
  13. EMERAL [Concomitant]
  14. SINGULAIR [Concomitant]
  15. POTASSIUM CHLORIDE [Concomitant]
  16. LORATADINE [Concomitant]
  17. KINERET [Concomitant]
  18. AMLODIPINE BESYLATE [Concomitant]
  19. SULFASALAZINE [Concomitant]
  20. PREDNISONE [Concomitant]
  21. VITAMIN D [Concomitant]
  22. PROVENTIL [Concomitant]
  23. HUMIRA [Concomitant]
  24. MECLIZINE [Concomitant]

REACTIONS (6)
  - FALL [None]
  - VIITH NERVE PARALYSIS [None]
  - GAIT DISTURBANCE [None]
  - ERYTHEMA [None]
  - CERVICAL VERTEBRAL FRACTURE [None]
  - ACCIDENT [None]
